FAERS Safety Report 17813584 (Version 2)
Quarter: 2020Q2

REPORT INFORMATION
  Report Type: Spontaneous
  Country: GB (occurrence: GB)
  Receive Date: 20200521
  Receipt Date: 20200618
  Transmission Date: 20200714
  Serious: Yes (Life-Threatening)
  Sender: FDA-Public Use
  Company Number: GB-DEXPHARM-20200049

PATIENT
  Age: 92 Year
  Sex: Female
  Weight: 68 kg

DRUGS (10)
  1. RANITIDINE. [Concomitant]
     Active Substance: RANITIDINE
     Dates: start: 20190828
  2. MONOPOST [Concomitant]
     Active Substance: LATANOPROST
     Dosage: AT NIGHT
     Dates: start: 20180530
  3. OMEPRAZOLE. [Suspect]
     Active Substance: OMEPRAZOLE
  4. SALBUTAMOL [Concomitant]
     Active Substance: ALBUTEROL
     Dosage: WHEN REQUIRED
     Route: 055
     Dates: start: 20180703
  5. FUROSEMIDE. [Concomitant]
     Active Substance: FUROSEMIDE
     Dates: start: 20171208
  6. CODEINE PHOSPHATE [Concomitant]
     Active Substance: CODEINE PHOSPHATE
     Dates: start: 20200303
  7. BISOPROLOL [Concomitant]
     Active Substance: BISOPROLOL
     Dates: start: 20190529
  8. APIXABAN [Concomitant]
     Active Substance: APIXABAN
     Dates: start: 20191126
  9. SPIRIVA [Concomitant]
     Active Substance: TIOTROPIUM BROMIDE MONOHYDRATE
     Dates: start: 20181029
  10. ISOSORBIDE MONONITRATE. [Concomitant]
     Active Substance: ISOSORBIDE MONONITRATE
     Dates: start: 20190430

REACTIONS (1)
  - Nephritis [Recovering/Resolving]
